FAERS Safety Report 8662865 (Version 2)
Quarter: 2013Q1

REPORT INFORMATION
  Report Type: Spontaneous
  Country: GR (occurrence: GR)
  Receive Date: 20120712
  Receipt Date: 20130204
  Transmission Date: 20140127
  Serious: Yes (Other)
  Sender: FDA-Public Use
  Company Number: GR-AMGEN-GRCSP2012037268

PATIENT
  Age: 75 Year
  Sex: Male

DRUGS (2)
  1. PROLIA [Suspect]
     Indication: METASTASES TO BONE
     Dosage: 60 MG, Q2WK
     Dates: start: 201111
  2. ANTIHYPERTENSIVES [Concomitant]
     Dosage: UNK

REACTIONS (2)
  - Generalised oedema [Recovered/Resolved]
  - Oedema peripheral [Recovered/Resolved]
